FAERS Safety Report 23062437 (Version 3)
Quarter: 2024Q1

REPORT INFORMATION
  Report Type: Spontaneous
  Country: US (occurrence: US)
  Receive Date: 20231013
  Receipt Date: 20240115
  Transmission Date: 20240409
  Serious: No
  Sender: FDA-Public Use
  Company Number: US-PFIZER INC-202300325141

PATIENT
  Age: 56 Year
  Sex: Female

DRUGS (13)
  1. IBRANCE [Suspect]
     Active Substance: PALBOCICLIB
     Indication: Breast cancer female
     Dosage: TAKE 1 75MG TABLET DAILY ON DAYS 1 THROUGH 21 EVERY 28 DAYS / 3 WEEKS ON, ONE WEEK OFF
     Route: 048
     Dates: start: 20190401
  2. LETROZOLE [Concomitant]
     Active Substance: LETROZOLE
  3. IBUPROFEN [Concomitant]
     Active Substance: IBUPROFEN
  4. CALCIUM +D [CALCIUM CARBONATE;COLECALCIFEROL] [Concomitant]
  5. TYLENOL EXTRA STRENGTH [Concomitant]
     Active Substance: ACETAMINOPHEN
  6. MAGNESIUM [Concomitant]
     Active Substance: MAGNESIUM
  7. BIOTIN [Concomitant]
     Active Substance: BIOTIN
  8. COLLAGEN [Concomitant]
     Active Substance: COLLAGEN
  9. GLUCOSAMINE/CHONDROITIN [CHONDROITIN SULFATE SODIUM;GLUCOSAMINE HYDROC [Concomitant]
  10. CALCIUM [Concomitant]
     Active Substance: CALCIUM
  11. PRILOSEC [Concomitant]
     Active Substance: OMEPRAZOLE MAGNESIUM
  12. SODIUM CHLORIDE [Concomitant]
     Active Substance: SODIUM CHLORIDE
  13. VITAMIN D3 [Concomitant]
     Active Substance: CHOLECALCIFEROL

REACTIONS (2)
  - Migraine [Unknown]
  - Laboratory test abnormal [Unknown]

NARRATIVE: CASE EVENT DATE: 20231201
